FAERS Safety Report 12781191 (Version 1)
Quarter: 2016Q3

REPORT INFORMATION
  Report Type: Spontaneous
  Country: US (occurrence: US)
  Receive Date: 20160926
  Receipt Date: 20160926
  Transmission Date: 20161109
  Serious: No
  Sender: FDA-Public Use
  Company Number: US-DUSA PHARMACEUTICALS, INC.-1057712

PATIENT
  Age: 60 Year
  Sex: Male

DRUGS (3)
  1. VALTREX [Concomitant]
     Active Substance: VALACYCLOVIR HYDROCHLORIDE
  2. LEVOTHYROXINE. [Concomitant]
     Active Substance: LEVOTHYROXINE
  3. LEVULAN KERASTICK [Suspect]
     Active Substance: AMINOLEVULINIC ACID HYDROCHLORIDE
     Indication: ACTINIC KERATOSIS
     Route: 061
     Dates: start: 20160316, end: 20160316

REACTIONS (5)
  - Application site vesicles [Recovering/Resolving]
  - Application site pain [Recovering/Resolving]
  - Application site swelling [Recovering/Resolving]
  - Application site scab [Recovering/Resolving]
  - Application site erythema [Recovering/Resolving]
